FAERS Safety Report 7122076-3 (Version None)
Quarter: 2010Q4

REPORT INFORMATION
  Report Type: 
  Country: None (occurrence: None)
  Receive Date: 20101124
  Receipt Date: 20101117
  Transmission Date: 20110411
  Serious: Yes (Other)
  Sender: FDA-Public Use
  Company Number: US-AMGEN-USASP2010005370

PATIENT

DRUGS (4)
  1. PROLIA [Suspect]
     Indication: OSTEOPOROSIS POSTMENOPAUSAL
     Dosage: UNK
     Dates: start: 20101101, end: 20101101
  2. FENTANYL [Concomitant]
     Indication: PAIN
  3. LORTAB [Concomitant]
     Indication: PAIN
  4. DRUG USED IN DIABETES [Concomitant]
     Indication: DIABETES MELLITUS

REACTIONS (5)
  - DIABETES MELLITUS INADEQUATE CONTROL [None]
  - FATIGUE [None]
  - FIBROMYALGIA [None]
  - INHIBITORY DRUG INTERACTION [None]
  - PAIN [None]
